FAERS Safety Report 5704626-4 (Version None)
Quarter: 2008Q2

REPORT INFORMATION
  Report Type: 
  Country: None (occurrence: None)
  Receive Date: 20080409
  Receipt Date: 20080403
  Transmission Date: 20081010
  Serious: Yes (Life-Threatening, Hospitalization)
  Sender: FDA-Public Use
  Company Number: TPA2008A00392

PATIENT
  Sex: Male
  Weight: 74.8435 kg

DRUGS (2)
  1. PIOGLITAZONE HCL [Suspect]
     Indication: CARDIOVASCULAR EVENT PROPHYLAXIS
     Dosage: 1 IN 1 D, PER ORAL
     Route: 048
     Dates: end: 20061207
  2. WARFARIN SODIUM [Concomitant]

REACTIONS (5)
  - ANAEMIA [None]
  - FALL [None]
  - HIP FRACTURE [None]
  - HYPOXIA [None]
  - TROPONIN INCREASED [None]
